FAERS Safety Report 7391523-4 (Version None)
Quarter: 2011Q2

REPORT INFORMATION
  Report Type: 
  Country: None (occurrence: None)
  Receive Date: 20110404
  Receipt Date: 20110321
  Transmission Date: 20111010
  Serious: Yes (Other)
  Sender: FDA-Public Use
  Company Number: US-SHIONOGI USA, INC-2011000034

PATIENT
  Age: 95 Year
  Sex: Female

DRUGS (11)
  1. ARICEPT [Concomitant]
     Dosage: UNK
     Dates: start: 20080101
  2. AVAPRO [Concomitant]
     Dosage: UNK
  3. CLONIDINE HCL [Concomitant]
     Dosage: UNK
     Dates: start: 20080101
  4. HYDRALAZINE HCL [Concomitant]
     Dosage: UNK
     Dates: start: 20080101
  5. IRON [Concomitant]
     Dosage: UNK
     Dates: start: 20080101
  6. NISOLDIPINE ER [Suspect]
     Dosage: 25.5 MG, QD
     Route: 048
     Dates: start: 20110314, end: 20110318
  7. ISOSORBIDE MONONITRATE [Concomitant]
     Dosage: UNK
     Dates: start: 20080101
  8. SULAR [Concomitant]
  9. NAMENDA [Concomitant]
     Dosage: UNK
     Dates: start: 20080101
  10. CHOLEST-OFF [Concomitant]
  11. FOLIC ACID [Concomitant]
     Dosage: UNK
     Dates: start: 20080101

REACTIONS (5)
  - DYSPNOEA [None]
  - DYSPHAGIA [None]
  - DERMATITIS BULLOUS [None]
  - PHARYNGEAL OEDEMA [None]
  - HYPERSENSITIVITY [None]
